FAERS Safety Report 7771944-8 (Version None)
Quarter: 2011Q3

REPORT INFORMATION
  Report Type: 
  Country: None (occurrence: None)
  Receive Date: 20110922
  Receipt Date: 20100115
  Transmission Date: 20111222
  Serious: No
  Sender: FDA-Public Use
  Company Number: US-ASTRAZENECA-2009SE21951

PATIENT
  Age: 10711 Day
  Sex: Female
  Weight: 99.8 kg

DRUGS (13)
  1. SEROQUEL [Suspect]
     Indication: SLEEP DISORDER
     Dosage: 25 TO 75 MG QHS PRN
     Route: 048
     Dates: start: 20070620
  2. PROZAC [Concomitant]
  3. CELEXA [Concomitant]
     Dosage: TAB 1/2 PO FOR 3 DAYS THEN TAB 1 PO QAM
     Route: 048
     Dates: start: 20070620
  4. SEROQUEL [Suspect]
     Dosage: 25-200 MG
     Route: 048
     Dates: start: 20070101, end: 20090601
  5. RISPERDAL [Concomitant]
  6. KLONOPIN [Concomitant]
     Dosage: 2 TO 4 MG
     Route: 048
     Dates: start: 20070620
  7. SEROQUEL [Suspect]
     Indication: DEPRESSION
     Dosage: 25 TO 75 MG QHS PRN
     Route: 048
     Dates: start: 20070620
  8. GEODON [Concomitant]
  9. LITHIUM CARBONATE [Concomitant]
     Dosage: 300 TO 1200 MG
     Route: 048
     Dates: start: 20070620
  10. ABILIFY [Concomitant]
  11. SEROQUEL [Suspect]
     Dosage: 25-200 MG
     Route: 048
     Dates: start: 20070101, end: 20090601
  12. PAXIL [Concomitant]
  13. PROPOXYPHENE NAPSYLATE AND ACETAMINOPHEN [Concomitant]
     Indication: PAIN
     Dosage: 100-650 MG, 1 TAB EVERY 4 HOURS AS NEEDED
     Route: 048
     Dates: start: 20070620

REACTIONS (3)
  - TYPE 2 DIABETES MELLITUS [None]
  - WEIGHT INCREASED [None]
  - MUSCULOSKELETAL DISCOMFORT [None]
